FAERS Safety Report 18285172 (Version 2)
Quarter: 2020Q4

REPORT INFORMATION
  Report Type: Report from Study
  Country: CA (occurrence: CA)
  Receive Date: 20200918
  Receipt Date: 20201020
  Transmission Date: 20210113
  Serious: Yes (Hospitalization)
  Sender: FDA-Public Use
  Company Number: CA-EISAI MEDICAL RESEARCH-EC-2020-076932

PATIENT
  Age: 68 Year
  Sex: Female
  Weight: 80 kg

DRUGS (3)
  1. LENVIMA [Suspect]
     Active Substance: LENVATINIB
     Indication: RENAL CELL CARCINOMA
     Route: 048
     Dates: start: 20200630, end: 202007
  2. LENVIMA [Suspect]
     Active Substance: LENVATINIB
     Route: 048
     Dates: start: 20200712, end: 20200803
  3. CORTEF [Concomitant]
     Active Substance: HYDROCORTISONE
     Indication: ADRENAL INSUFFICIENCY

REACTIONS (3)
  - Skin exfoliation [Recovered/Resolved]
  - Infection [Unknown]
  - Red blood cell count decreased [Recovering/Resolving]

NARRATIVE: CASE EVENT DATE: 2020
